FAERS Safety Report 8421139-X (Version None)
Quarter: 2012Q2

REPORT INFORMATION
  Report Type: 
  Country: None (occurrence: None)
  Receive Date: 20120608
  Receipt Date: 20120529
  Transmission Date: 20120825
  Serious: Yes (Hospitalization, Other)
  Sender: FDA-Public Use
  Company Number: DE-JNJFOC-20120406127

PATIENT
  Sex: Male

DRUGS (7)
  1. CALCIMAGON-D3 [Concomitant]
  2. NEBIVOLOL [Concomitant]
     Indication: ATRIAL FIBRILLATION
  3. MARCUMAR [Suspect]
     Indication: PRODUCT USED FOR UNKNOWN INDICATION
  4. RIVAROXABAN [Suspect]
     Indication: ATRIAL FIBRILLATION
     Route: 048
  5. PANTOPRAZOLE [Concomitant]
     Indication: GASTRITIS
  6. RIVAROXABAN [Suspect]
     Indication: CEREBROVASCULAR ACCIDENT PROPHYLAXIS
     Route: 048
  7. TORSEMIDE [Concomitant]

REACTIONS (2)
  - HAEMOGLOBIN DECREASED [None]
  - GASTRITIS EROSIVE [None]
